FAERS Safety Report 15386962 (Version 1)
Quarter: 2018Q3

REPORT INFORMATION
  Report Type: Spontaneous
  Country: US (occurrence: US)
  Receive Date: 20180914
  Receipt Date: 20180914
  Transmission Date: 20181010
  Serious: Yes (Other)
  Sender: FDA-Public Use
  Company Number: US-PFIZER INC-2018367887

PATIENT
  Age: 64 Year
  Sex: Female

DRUGS (14)
  1. MORPHINE SULFATE. [Suspect]
     Active Substance: MORPHINE SULFATE
     Indication: PAIN
     Dosage: 25 MG, AS NEEDED (AT A BASE RATE OF 35 MG/H AND A 25?MG BOLUS Q15 MIN; EVERY 15 MIN)
     Route: 040
  2. TRIAMCINOLONE [Concomitant]
     Active Substance: TRIAMCINOLONE
     Dosage: UNK, 3X/DAY (INHALER, FOUR PUFFS)
  3. METOCLOPRAMIDE. [Concomitant]
     Active Substance: METOCLOPRAMIDE
     Dosage: 10 MG, 4X/DAY (PER FEEDING TUBE Q6 HRS)
  4. IPRATROPIUM BROMIDE. [Concomitant]
     Active Substance: IPRATROPIUM BROMIDE
     Dosage: UNK, 4X/DAY (NASAL SPRAY, 2 SPRAYS)
     Route: 045
  5. LORAZEPAM. [Concomitant]
     Active Substance: LORAZEPAM
     Indication: PAIN
     Dosage: 2 MG, AS NEEDED (PER FEEDING TUBE Q6 HRS)
  6. MORPHINE SULFATE. [Suspect]
     Active Substance: MORPHINE SULFATE
     Dosage: UNK, AS NEEDED (MORPHINE EVERY 15 MIN)
     Route: 040
  7. MECLIZINE HCL [Concomitant]
     Active Substance: MECLIZINE HYDROCHLORIDE
     Dosage: 25 MG, DAILY (PER FEEDING TUBE)
  8. MORPHINE SULFATE. [Suspect]
     Active Substance: MORPHINE SULFATE
     Dosage: 5 MG, AS NEEDED (AT 20 MG/H BASE RATE WITH 5 MG IV Q15 MIN)
     Route: 040
  9. PROMETHAZINE [Concomitant]
     Active Substance: PROMETHAZINE\PROMETHAZINE HYDROCHLORIDE
     Indication: NAUSEA
     Dosage: UNK (25 MGIM Q6 HRS, REGULARLY EVERY 6 HRS)
     Route: 030
  10. RISPERIDONE. [Concomitant]
     Active Substance: RISPERIDONE
     Indication: PAIN
     Dosage: 1 MG, 2X/DAY PER FEEDING TUBE
  11. PREDNISONE. [Concomitant]
     Active Substance: PREDNISONE
     Dosage: UNK
  12. FENTANYL. [Concomitant]
     Active Substance: FENTANYL
     Dosage: 75 MG, (75?MG PATCH APPLIED TO THE SKIN, CHANGED EVERY 72 HRS)
  13. SUCRALFATE. [Concomitant]
     Active Substance: SUCRALFATE
     Dosage: 1 G, UNK (BEFORE EACH MEAL)
     Route: 048
  14. BISACODYL. [Concomitant]
     Active Substance: BISACODYL
     Dosage: UNK, AS NEEDED
     Route: 054

REACTIONS (4)
  - Ileus [Unknown]
  - Drug ineffective [Unknown]
  - Faecaloma [Unknown]
  - Nausea [Unknown]
